FAERS Safety Report 11807581 (Version 1)
Quarter: 2015Q4

REPORT INFORMATION
  Report Type: Other
  Country: DE (occurrence: DE)
  Receive Date: 20151207
  Receipt Date: 20151207
  Transmission Date: 20160305
  Serious: Yes (Other)
  Sender: FDA-Public Use
  Company Number: DE-MYLANLABS-2015M1042429

PATIENT

DRUGS (1)
  1. LAMOTRIGIN [Suspect]
     Active Substance: LAMOTRIGINE
     Indication: EPILEPSY
     Dosage: 450 [MG/D ]/ DOSAGE REDUCTION TO 250MG/D
     Route: 063

REACTIONS (3)
  - Somnolence [Recovered/Resolved]
  - Exposure during breast feeding [Unknown]
  - Hypotonia neonatal [Recovered/Resolved]
